FAERS Safety Report 6215848-0 (Version None)
Quarter: 2009Q2

REPORT INFORMATION
  Report Type: 
  Country: None (occurrence: None)
  Receive Date: 20090605
  Receipt Date: 20090525
  Transmission Date: 20091009
  Serious: Yes (Other)
  Sender: FDA-Public Use
  Company Number: FR-BAXTER-2009BH009027

PATIENT
  Age: 69 Year
  Sex: Male

DRUGS (12)
  1. GAMMAGARD LIQUID [Suspect]
     Indication: LEWIS-SUMNER SYNDROME
     Route: 042
     Dates: start: 20090202, end: 20090204
  2. GAMMAGARD LIQUID [Suspect]
     Indication: OFF LABEL USE
     Route: 042
     Dates: start: 20090202, end: 20090204
  3. GAMMAGARD LIQUID [Suspect]
     Route: 042
     Dates: start: 20090202, end: 20090204
  4. GAMMAGARD LIQUID [Suspect]
     Route: 042
     Dates: start: 20090202, end: 20090204
  5. GAMMAGARD LIQUID [Suspect]
     Route: 042
     Dates: start: 20090202, end: 20090204
  6. GAMMAGARD LIQUID [Suspect]
     Route: 042
     Dates: start: 20090202, end: 20090204
  7. TEGELINE [Suspect]
     Indication: LEWIS-SUMNER SYNDROME
     Route: 042
     Dates: start: 20080721, end: 20080912
  8. TEGELINE [Suspect]
     Route: 042
     Dates: start: 20090323
  9. TEGELINE [Suspect]
     Route: 042
     Dates: start: 20080721, end: 20080912
  10. TEGELINE [Suspect]
     Route: 042
     Dates: start: 20090323
  11. OCTAGAM [Suspect]
     Indication: LEWIS-SUMNER SYNDROME
     Route: 042
     Dates: start: 20081028, end: 20081219
  12. OCTAGAM [Suspect]
     Route: 042
     Dates: start: 20081028, end: 20081219

REACTIONS (3)
  - ECZEMA [None]
  - HYPERKERATOSIS PALMARIS AND PLANTARIS [None]
  - NAIL DISORDER [None]
